FAERS Safety Report 6491723-1 (Version None)
Quarter: 2009Q4

REPORT INFORMATION
  Report Type: 
  Country: None (occurrence: None)
  Receive Date: 20091208
  Receipt Date: 20091130
  Transmission Date: 20100525
  Serious: Yes (Death, Other)
  Sender: FDA-Public Use
  Company Number: 2009JP005211

PATIENT
  Sex: Male

DRUGS (3)
  1. PROGRAF [Suspect]
     Indication: BONE MARROW TRANSPLANT
     Dosage: 0.1 MG, D, IV DRIP, 5 MG, D, IV BOLUS
     Route: 041
     Dates: start: 20090716, end: 20090803
  2. PROGRAF [Suspect]
     Indication: BONE MARROW TRANSPLANT
     Dosage: 0.1 MG, D, IV DRIP, 5 MG, D, IV BOLUS
     Route: 041
     Dates: start: 20090804, end: 20090804
  3. PRODIF (FOSFLUCONAZOLE) INJECTION [Concomitant]

REACTIONS (6)
  - CEREBRAL HAEMORRHAGE [None]
  - INCORRECT DRUG ADMINISTRATION RATE [None]
  - MULTI-ORGAN FAILURE [None]
  - OVERDOSE [None]
  - PNEUMONIA [None]
  - STAPHYLOCOCCAL SEPSIS [None]
